FAERS Safety Report 12238554 (Version 1)
Quarter: 2016Q2

REPORT INFORMATION
  Report Type: Spontaneous
  Country: US (occurrence: None)
  Receive Date: 20160404
  Receipt Date: 20160404
  Transmission Date: 20160815
  Serious: Yes (Congenital Anomaly)
  Sender: FDA-Public Use
  Company Number: None

PATIENT
  Sex: Female

DRUGS (1)
  1. CLOZAPINE 600MG [Suspect]
     Active Substance: CLOZAPINE
     Dosage: CONSUMER ACTUALLY TOOK 400 MG

REACTIONS (3)
  - Maternal exposure during pregnancy [None]
  - Maternal drugs affecting foetus [None]
  - Craniosynostosis [None]

NARRATIVE: CASE EVENT DATE: 201603
